FAERS Safety Report 7369339-4 (Version None)
Quarter: 2011Q1

REPORT INFORMATION
  Report Type: 
  Country: None (occurrence: None)
  Receive Date: 20110323
  Receipt Date: 20110316
  Transmission Date: 20110831
  Serious: Yes (Hospitalization)
  Sender: FDA-Public Use
  Company Number: B0707759A

PATIENT
  Sex: Male

DRUGS (2)
  1. AUGMENTIN '125' [Suspect]
     Indication: COUGH
     Route: 048
     Dates: start: 20101216, end: 20101217
  2. SOBREPIN [Suspect]
     Dates: start: 20101216, end: 20101217

REACTIONS (2)
  - BRONCHOSPASM [None]
  - DYSPNOEA [None]
